FAERS Safety Report 7973192-5 (Version None)
Quarter: 2011Q4

REPORT INFORMATION
  Report Type: 
  Country: None (occurrence: None)
  Receive Date: 20111213
  Receipt Date: 20111212
  Transmission Date: 20120403
  Serious: Yes (Other)
  Sender: FDA-Public Use
  Company Number: ZA-BAYER-2011-118569

PATIENT
  Age: 80 Year
  Sex: Male

DRUGS (9)
  1. ASPIRIN [Suspect]
  2. LANSOPRAZOLE [Concomitant]
  3. LOVAZA [Concomitant]
  4. PREXUM PLUS [Suspect]
  5. LEVOTHYROXINE SODIUM [Suspect]
     Dosage: 0.05 MG, UNK
  6. RENNIES [Concomitant]
  7. CITRO-SODA [Concomitant]
  8. CLOPIDOGREL [Suspect]
     Dosage: DAILY DOSE 75 MG
  9. ARTHROGUARD [Concomitant]

REACTIONS (7)
  - PAIN [None]
  - HYPERAESTHESIA [None]
  - ARTHRALGIA [None]
  - BEDRIDDEN [None]
  - JOINT SWELLING [None]
  - BURNING SENSATION [None]
  - DYSKINESIA [None]
